FAERS Safety Report 9203208 (Version 1)
Quarter: 2013Q1

REPORT INFORMATION
  Report Type: Spontaneous
  Country: FR (occurrence: None)
  Receive Date: 20130328
  Receipt Date: 20130328
  Transmission Date: 20140127
  Serious: Yes (Other)
  Sender: FDA-Public Use
  Company Number: FR-011252

PATIENT
  Age: 30 Year
  Sex: Female

DRUGS (1)
  1. PICOPREP [Suspect]
     Indication: BOWEL PREPARATION
     Dosage: (2 DF QD, 2 SACHETS ORAL)
     Route: 048
     Dates: start: 20130228, end: 20130228

REACTIONS (1)
  - Malaise [None]
